FAERS Safety Report 14775137 (Version 1)
Quarter: 2018Q2

REPORT INFORMATION
  Report Type: Spontaneous
  Country: US (occurrence: US)
  Receive Date: 20180418
  Receipt Date: 20180418
  Transmission Date: 20180711
  Serious: No
  Sender: FDA-Public Use
  Company Number: US-GLENMARK PHARMACEUTICALS-2018GMK032607

PATIENT

DRUGS (2)
  1. NYSTATIN/TRIAMCINOLONE ACETONIDE [Suspect]
     Active Substance: NYSTATIN\TRIAMCINOLONE ACETONIDE
     Indication: NASAL DISCOMFORT
     Dosage: UNK
     Route: 061
  2. MUPIROCIN. [Suspect]
     Active Substance: MUPIROCIN
     Indication: NASAL DISCOMFORT
     Dosage: UNK
     Route: 061
     Dates: start: 20180214, end: 20180216

REACTIONS (6)
  - Product use in unapproved indication [Unknown]
  - Incorrect route of drug administration [Unknown]
  - Product use issue [Unknown]
  - Pain [Unknown]
  - Muscle spasms [Unknown]
  - Diarrhoea [Not Recovered/Not Resolved]

NARRATIVE: CASE EVENT DATE: 20180214
